FAERS Safety Report 12231745 (Version 1)
Quarter: 2016Q2

REPORT INFORMATION
  Report Type: Spontaneous
  Country: US (occurrence: US)
  Receive Date: 20160401
  Receipt Date: 20160401
  Transmission Date: 20160815
  Serious: Yes (Hospitalization, Other)
  Sender: FDA-Public Use
  Company Number: US-SHIRE-US201603609

PATIENT
  Age: 58 Year
  Sex: Female
  Weight: 70.3 kg

DRUGS (9)
  1. VYVANSE [Suspect]
     Active Substance: LISDEXAMFETAMINE DIMESYLATE
     Indication: SEIZURE
     Dosage: 20 MG, 1X/DAY:QD
     Route: 048
     Dates: start: 2015
  2. LISINOPRIL HCT                     /01613901/ [Concomitant]
     Indication: HYPERTENSION
     Dosage: 20-12 MG, 1X/DAY:QD
     Route: 048
  3. BACLOFEN. [Concomitant]
     Active Substance: BACLOFEN
     Indication: SPINAL OSTEOARTHRITIS
     Dosage: 10 MG, AS REQ^D (2-3 X PER DAY)
     Route: 048
  4. BACLOFEN. [Concomitant]
     Active Substance: BACLOFEN
     Indication: INTERVERTEBRAL DISC DEGENERATION
  5. FLUTICASONE [Concomitant]
     Active Substance: FLUTICASONE\FLUTICASONE PROPIONATE
     Indication: MASTOID DISORDER
     Dosage: 2 DF (50 MG/2 SPRAYS), 2X/DAY:BID (EACH NOSTRIL)
     Route: 045
  6. METFORMIN [Concomitant]
     Active Substance: METFORMIN HYDROCHLORIDE
     Indication: DIABETES MELLITUS
     Dosage: 1000 MG, 2X/DAY:BID
     Route: 048
  7. ESTRADIOL. [Concomitant]
     Active Substance: ESTRADIOL
     Indication: OESTROGEN REPLACEMENT THERAPY
     Dosage: 1 MG, 1X/DAY:QD
     Route: 048
  8. LEXAPRO [Concomitant]
     Active Substance: ESCITALOPRAM OXALATE
     Indication: DEPRESSION
     Dosage: 20 MG, 1X/DAY:QD
     Route: 048
  9. GABAPENTIN. [Concomitant]
     Active Substance: GABAPENTIN
     Indication: NEUROPATHY PERIPHERAL
     Dosage: 300 MG, AS REQ^D (3-4 X PER DAY)
     Route: 048

REACTIONS (3)
  - Ear pain [Not Recovered/Not Resolved]
  - Product use issue [Not Recovered/Not Resolved]
  - Cerebrospinal fluid leakage [Recovered/Resolved]

NARRATIVE: CASE EVENT DATE: 2015
